FAERS Safety Report 18103022 (Version 1)
Quarter: 2020Q3

REPORT INFORMATION
  Report Type: Spontaneous
  Country: US (occurrence: US)
  Receive Date: 20200731
  Receipt Date: 20200731
  Transmission Date: 20201103
  Serious: Yes (Other)
  Sender: FDA-Public Use
  Company Number: None

PATIENT
  Age: 30 Year
  Sex: Female
  Weight: 49.5 kg

DRUGS (1)
  1. MACROBID [Suspect]
     Active Substance: NITROFURANTOIN\NITROFURANTOIN MONOHYDRATE
     Indication: URINARY TRACT INFECTION
     Route: 048
     Dates: start: 20200703, end: 20200707

REACTIONS (9)
  - Dyspnoea [None]
  - Drug hypersensitivity [None]
  - Myalgia [None]
  - Rash papular [None]
  - Respiratory distress [None]
  - Cough [None]
  - Lymphopenia [None]
  - Rash [None]
  - Pyrexia [None]

NARRATIVE: CASE EVENT DATE: 20200705
